FAERS Safety Report 9934922 (Version 2)
Quarter: 2014Q2

REPORT INFORMATION
  Report Type: Spontaneous
  Country: IT (occurrence: IT)
  Receive Date: 20140228
  Receipt Date: 20140402
  Transmission Date: 20141212
  Serious: Yes (Other)
  Sender: FDA-Public Use
  Company Number: IT-TEVA-464305ISR

PATIENT
  Age: 70 Year
  Sex: Female

DRUGS (3)
  1. RIBAVIRIN [Suspect]
     Indication: HEPATITIS C
     Dosage: 800 MILLIGRAM DAILY;
     Route: 048
     Dates: start: 20130207, end: 20140117
  2. INTERFERON ALFA-2A PEGYLATED [Suspect]
     Indication: HEPATITIS C
     Dosage: 25.7143 MICROGRAM DAILY;
     Route: 058
     Dates: start: 20130207, end: 20140217
  3. FOLIC ACID [Concomitant]
     Indication: PRODUCT USED FOR UNKNOWN INDICATION

REACTIONS (4)
  - Anaemia [Unknown]
  - Asthenia [Unknown]
  - Dyspnoea [Unknown]
  - Presyncope [Unknown]
